FAERS Safety Report 6616429-7 (Version None)
Quarter: 2010Q1

REPORT INFORMATION
  Report Type: 
  Country: None (occurrence: None)
  Receive Date: 20100305
  Receipt Date: 20100223
  Transmission Date: 20100710
  Serious: Yes (Hospitalization, Other)
  Sender: FDA-Public Use
  Company Number: PHHY2010MX10999

PATIENT
  Age: 75 Year
  Sex: Female

DRUGS (2)
  1. EXFORGE [Suspect]
     Indication: HYPERTENSION
     Dosage: 1 TABLET (160/10 MG) PER DAY
     Dates: start: 20090101, end: 20100201
  2. ACETYLSALICYLIC ACID [Concomitant]
     Indication: CARDIAC DISORDER

REACTIONS (2)
  - EYE OPERATION [None]
  - OEDEMA PERIPHERAL [None]
